FAERS Safety Report 26064979 (Version 2)
Quarter: 2025Q4

REPORT INFORMATION
  Report Type: Spontaneous
  Country: US (occurrence: US)
  Receive Date: 20251119
  Receipt Date: 20251222
  Transmission Date: 20260117
  Serious: Yes (Hospitalization, Other)
  Sender: SAMSUNG BIOEPIS
  Company Number: US-SAMSUNG BIOEPIS-SB-2025-38107

PATIENT
  Age: 26 Year
  Sex: Male

DRUGS (2)
  1. ECULIZUMAB [Suspect]
     Active Substance: ECULIZUMAB
     Indication: Haemolysis
  2. HUMAN IMMUNOGLOBULIN G [Concomitant]
     Active Substance: HUMAN IMMUNOGLOBULIN G
     Indication: Haemolysis

REACTIONS (8)
  - Cerebrovascular accident [Unknown]
  - Sickle cell anaemia with crisis [Unknown]
  - Anaemia [Unknown]
  - Pyrexia [Unknown]
  - Dyspnoea [Unknown]
  - Mental status changes [Unknown]
  - Chest pain [Unknown]
  - Off label use [Unknown]
